FAERS Safety Report 17336846 (Version 1)
Quarter: 2020Q1

REPORT INFORMATION
  Report Type: Spontaneous
  Country: SE (occurrence: SE)
  Receive Date: 20200128
  Receipt Date: 20200128
  Transmission Date: 20200409
  Serious: Yes (Hospitalization)
  Sender: FDA-Public Use
  Company Number: SE-MYLANLABS-2020M1008804

PATIENT
  Age: 18 Year
  Sex: Male

DRUGS (3)
  1. RINEXIN [Suspect]
     Active Substance: PHENYLPROPANOLAMINE
     Indication: PRODUCT USED FOR UNKNOWN INDICATION
     Dosage: UNK
     Route: 048
     Dates: start: 20180209, end: 20180209
  2. MELATONIN [Suspect]
     Active Substance: MELATONIN
     Indication: PRODUCT USED FOR UNKNOWN INDICATION
     Dosage: UNK
     Route: 048
     Dates: start: 20180209, end: 20180209
  3. LERGIGAN (PROMETHAZINE HYDROCHLORIDE) [Suspect]
     Active Substance: PROMETHAZINE HYDROCHLORIDE
     Indication: PRODUCT USED FOR UNKNOWN INDICATION
     Dosage: 20 ST. 25 MG LERGIGAN
     Route: 048
     Dates: start: 20180209, end: 20180209

REACTIONS (3)
  - Intentional self-injury [Unknown]
  - Intentional overdose [Unknown]
  - Depressed level of consciousness [Unknown]

NARRATIVE: CASE EVENT DATE: 20180209
